FAERS Safety Report 5636019-2 (Version None)
Quarter: 2008Q1

REPORT INFORMATION
  Report Type: 
  Country: None (occurrence: None)
  Receive Date: 20080220
  Receipt Date: 20080220
  Transmission Date: 20080703
  Serious: Yes (Life-Threatening)
  Sender: FDA-Public Use
  Company Number: None

PATIENT
  Sex: Female
  Weight: 75.6 kg

DRUGS (1)
  1. PERSANTINE [Suspect]
     Indication: CARDIAC STRESS TEST
     Dosage: ONCE IV
     Route: 042
     Dates: start: 20080204

REACTIONS (4)
  - BRADYCARDIA [None]
  - CARDIAC ARREST [None]
  - FEELING ABNORMAL [None]
  - RESPIRATORY ARREST [None]
